FAERS Safety Report 24140379 (Version 2)
Quarter: 2024Q3

REPORT INFORMATION
  Report Type: Spontaneous
  Country: US (occurrence: US)
  Receive Date: 20240726
  Receipt Date: 20240909
  Transmission Date: 20241016
  Serious: Yes (Other)
  Sender: ASTELLAS
  Company Number: US-ASTELLAS-2024US021088

PATIENT
  Age: 82 Year
  Sex: Male

DRUGS (4)
  1. XTANDI [Suspect]
     Active Substance: ENZALUTAMIDE
     Indication: Prostate cancer metastatic
     Dosage: 160 MG, ONCE DAILY
     Route: 048
     Dates: start: 20240624
  2. LUPRON [Concomitant]
     Active Substance: LEUPROLIDE ACETATE
     Indication: Product used for unknown indication
     Dosage: UNKNOWN. ROUTE, DOSE AND FREQUENCY
     Route: 065
     Dates: start: 2024
  3. SYNTHROID [Concomitant]
     Active Substance: LEVOTHYROXINE SODIUM
     Indication: Blood thyroid stimulating hormone increased
     Dosage: UNKNOWN. ROUTE, DOSE AND FREQUENCY
     Route: 065
     Dates: start: 1991, end: 202407
  4. SYNTHROID [Concomitant]
     Active Substance: LEVOTHYROXINE SODIUM
     Indication: Thyroidectomy
     Dosage: UNKNOWN. ROUTE, DOSE AND FREQUENCY
     Route: 065
     Dates: start: 202407

REACTIONS (2)
  - Blood thyroid stimulating hormone increased [Not Recovered/Not Resolved]
  - Dyspnoea [Not Recovered/Not Resolved]

NARRATIVE: CASE EVENT DATE: 20240701
